FAERS Safety Report 6102621-7 (Version None)
Quarter: 2009Q1

REPORT INFORMATION
  Report Type: 
  Country: None (occurrence: None)
  Receive Date: 20090304
  Receipt Date: 20081020
  Transmission Date: 20090719
  Serious: No
  Sender: FDA-Public Use
  Company Number: A0752525A

PATIENT
  Age: 70 Year
  Sex: Female

DRUGS (4)
  1. REQUIP XL [Suspect]
     Indication: PARKINSON'S DISEASE
     Dosage: 6MG PER DAY
     Route: 048
     Dates: start: 20081001
  2. AMANTADINE HCL [Concomitant]
  3. CARBIDOPA AND LEVODOPA [Concomitant]
  4. EFFEXOR [Concomitant]

REACTIONS (1)
  - IMPAIRED WORK ABILITY [None]
